FAERS Safety Report 9652176 (Version 3)
Quarter: 2014Q2

REPORT INFORMATION
  Report Type: Report from Study
  Country: DE (occurrence: DE)
  Receive Date: 20131029
  Receipt Date: 20140609
  Transmission Date: 20141212
  Serious: Yes (Hospitalization)
  Sender: FDA-Public Use
  Company Number: DE-ABBVIE-13P-062-1162618-00

PATIENT
  Sex: Female
  Weight: 69 kg

DRUGS (6)
  1. HUMIRA [Suspect]
     Indication: RHEUMATOID ARTHRITIS
     Route: 058
  2. DECORTIN [Suspect]
     Indication: PRODUCT USED FOR UNKNOWN INDICATION
  3. ASS [Suspect]
     Indication: PRODUCT USED FOR UNKNOWN INDICATION
  4. ARAVA [Suspect]
     Indication: PRODUCT USED FOR UNKNOWN INDICATION
     Dates: start: 20110516
  5. GABAPENTIN [Suspect]
     Indication: POST HERPETIC NEURALGIA
     Dosage: THERAPY BREAK UP
     Dates: start: 2013, end: 2013
  6. DICLOFENAC [Concomitant]
     Indication: PRODUCT USED FOR UNKNOWN INDICATION
     Dates: end: 2013

REACTIONS (9)
  - Intervertebral disc protrusion [Recovered/Resolved]
  - Rehabilitation therapy [Unknown]
  - Herpes zoster [Recovered/Resolved]
  - Hypoaesthesia [Not Recovered/Not Resolved]
  - Drug dose omission [Unknown]
  - Neuralgia [Unknown]
  - Drug intolerance [Unknown]
  - Sciatica [Not Recovered/Not Resolved]
  - Osteopenia [Not Recovered/Not Resolved]
